FAERS Safety Report 8446983-4 (Version None)
Quarter: 2012Q2

REPORT INFORMATION
  Report Type: 
  Country: None (occurrence: None)
  Receive Date: 20120612
  Receipt Date: 20120605
  Transmission Date: 20120825
  Serious: Yes (Other)
  Sender: FDA-Public Use
  Company Number: 2012SP029079

PATIENT
  Age: 53 Year
  Sex: Male
  Weight: 58 kg

DRUGS (5)
  1. FLOMOX [Concomitant]
  2. PA [Concomitant]
  3. AMIODARONE HYDROCHLORIDE [Concomitant]
  4. CLARITIN [Suspect]
     Indication: SEASONAL ALLERGY
     Dosage: 10 MG;QD;PO
     Route: 048
     Dates: start: 20120417, end: 20120419
  5. LOXONIN [Concomitant]

REACTIONS (5)
  - ABDOMINAL PAIN UPPER [None]
  - HYPOPHAGIA [None]
  - OESOPHAGITIS [None]
  - GASTRITIS EROSIVE [None]
  - DYSPEPSIA [None]
